FAERS Safety Report 22016984 (Version 1)
Quarter: 2023Q1

REPORT INFORMATION
  Report Type: Report from Study
  Country: US (occurrence: US)
  Receive Date: 20230221
  Receipt Date: 20230221
  Transmission Date: 20230418
  Serious: Yes (Other)
  Sender: FDA-Public Use
  Company Number: US-TAKEDA-2021TUS082382

PATIENT
  Sex: Female

DRUGS (4)
  1. MARIBAVIR [Suspect]
     Active Substance: MARIBAVIR
     Indication: Cytomegalovirus infection
     Dosage: 400 MILLIGRAM, BID
     Route: 048
     Dates: start: 20211208
  2. MARIBAVIR [Suspect]
     Active Substance: MARIBAVIR
     Dosage: 200 MILLIGRAM, Q12H
     Route: 048
     Dates: start: 20211208
  3. MARIBAVIR [Suspect]
     Active Substance: MARIBAVIR
     Dosage: 400 MILLIGRAM, Q12H
     Route: 048
     Dates: start: 20211208
  4. MARIBAVIR [Suspect]
     Active Substance: MARIBAVIR
     Dosage: 2 MILLIGRAM, Q12H
     Route: 048
     Dates: start: 20211208

REACTIONS (3)
  - Cardiac disorder [Unknown]
  - Fistula [Recovering/Resolving]
  - Dysgeusia [Recovered/Resolved]
